FAERS Safety Report 22254988 (Version 1)
Quarter: 2023Q2

REPORT INFORMATION
  Report Type: Report from Study
  Country: IT (occurrence: None)
  Receive Date: 20230426
  Receipt Date: 20230426
  Transmission Date: 20230721
  Serious: Yes (Death)
  Sender: FDA-Public Use
  Company Number: 2023A092888

PATIENT
  Age: 63 Year
  Sex: Male

DRUGS (1)
  1. GEFITINIB [Suspect]
     Active Substance: GEFITINIB
     Indication: Non-small cell lung cancer
     Dosage: UNK
     Route: 048

REACTIONS (2)
  - Cerebral ischaemia [Fatal]
  - Epilepsy [Fatal]
